FAERS Safety Report 13609398 (Version 1)
Quarter: 2017Q2

REPORT INFORMATION
  Report Type: Spontaneous
  Country: GB (occurrence: GB)
  Receive Date: 20170602
  Receipt Date: 20170602
  Transmission Date: 20170830
  Serious: Yes (Hospitalization)
  Sender: FDA-Public Use
  Company Number: GB-WARNER CHILCOTT-2016-002145

PATIENT
  Age: 84 Year
  Sex: Female

DRUGS (2)
  1. ASACOL [Suspect]
     Active Substance: MESALAMINE
     Dosage: UNKNOWN
     Route: 054
  2. ASACOL [Suspect]
     Active Substance: MESALAMINE
     Indication: COLITIS
     Dosage: UNKNOWN
     Route: 067

REACTIONS (1)
  - Adverse event [Unknown]
